FAERS Safety Report 21785156 (Version 1)
Quarter: 2022Q4

REPORT INFORMATION
  Report Type: Spontaneous
  Country: US (occurrence: None)
  Receive Date: 20221227
  Receipt Date: 20221227
  Transmission Date: 20230112
  Serious: Yes (unspecified)
  Sender: FDA-Public Use
  Company Number: None

PATIENT
  Age: 42 Year
  Sex: Female
  Weight: 65 kg

DRUGS (13)
  1. PROPOFOL [Suspect]
     Active Substance: PROPOFOL
     Indication: Sedation
     Dosage: OTHER FREQUENCY : CONTINUOUS;?
     Route: 041
     Dates: start: 20221101, end: 20221215
  2. PROPOFOL [Suspect]
     Active Substance: PROPOFOL
     Indication: Delirium
  3. chlorhexidine gluconate oral liquid [Concomitant]
     Dates: start: 20221029, end: 20221126
  4. MIDAZOLAM HYDROCHLORIDE [Concomitant]
     Active Substance: MIDAZOLAM HYDROCHLORIDE
     Dates: start: 20221028, end: 20221120
  5. KETAMINE [Concomitant]
     Active Substance: KETAMINE
     Dates: start: 20221115, end: 20221118
  6. QUETIAPINE [Concomitant]
     Active Substance: QUETIAPINE
     Dates: start: 20221107, end: 20221210
  7. HEPARIN [Concomitant]
     Active Substance: HEPARIN SODIUM
     Dates: start: 20221114, end: 20221119
  8. Prosource enteral liquid protein [Concomitant]
     Dates: start: 20221029, end: 20221116
  9. POLYETHYLENE GLYCOL [Concomitant]
     Active Substance: POLYETHYLENE GLYCOL
     Dates: start: 20221030, end: 20221203
  10. LANSOPRAZOLE [Concomitant]
     Active Substance: LANSOPRAZOLE
     Dates: start: 20221108, end: 20221210
  11. INSULIN GLARGINE [Concomitant]
     Active Substance: INSULIN GLARGINE
     Dates: start: 20221103, end: 20221210
  12. FENTANYL [Concomitant]
     Active Substance: FENTANYL
     Dates: start: 20221113, end: 20221122
  13. dextrose 10% infusion [Concomitant]
     Dates: start: 20221115, end: 20221121

REACTIONS (1)
  - Hypertriglyceridaemia [None]

NARRATIVE: CASE EVENT DATE: 20221115
